FAERS Safety Report 8300018-2 (Version None)
Quarter: 2012Q2

REPORT INFORMATION
  Report Type: 
  Country: None (occurrence: None)
  Receive Date: 20120420
  Receipt Date: 20120412
  Transmission Date: 20120825
  Serious: No
  Sender: FDA-Public Use
  Company Number: US-BIOGENIDEC-2012BI013159

PATIENT
  Age: 29 Year
  Sex: Female

DRUGS (2)
  1. TYSABRI [Suspect]
     Indication: MULTIPLE SCLEROSIS
     Route: 042
     Dates: start: 20080401, end: 20080702
  2. TYSABRI [Suspect]
     Route: 042
     Dates: start: 20110715

REACTIONS (9)
  - GAIT DISTURBANCE [None]
  - INSOMNIA [None]
  - FATIGUE [None]
  - BACK PAIN [None]
  - ARTHROPATHY [None]
  - HEADACHE [None]
  - BALANCE DISORDER [None]
  - INFLUENZA LIKE ILLNESS [None]
  - DIZZINESS [None]
